FAERS Safety Report 4984201-X (Version None)
Quarter: 2006Q2

REPORT INFORMATION
  Report Type: 
  Country: None (occurrence: None)
  Receive Date: 20060420
  Receipt Date: 20060407
  Transmission Date: 20061013
  Serious: Yes (Hospitalization)
  Sender: FDA-Public Use
  Company Number: 2006048687

PATIENT
  Age: 58 Year
  Sex: Female

DRUGS (4)
  1. LYRICA [Suspect]
     Indication: NEURALGIA
     Dosage: 300 MG (150 MG, 2 IN 1 D), ORAL
     Route: 048
     Dates: start: 20050317, end: 20060406
  2. TRAMADOL HCL [Concomitant]
  3. PRIMASPAN (ACETYLSALICYLIC ACID) [Concomitant]
  4. PLAVIX [Concomitant]

REACTIONS (1)
  - POLYARTHRITIS [None]
